FAERS Safety Report 17486016 (Version 2)
Quarter: 2020Q3

REPORT INFORMATION
  Report Type: Spontaneous
  Country: US (occurrence: US)
  Receive Date: 20200303
  Receipt Date: 20200915
  Transmission Date: 20201102
  Serious: Yes (Hospitalization, Other)
  Sender: FDA-Public Use
  Company Number: US-LUPIN PHARMACEUTICALS INC.-2020-01043

PATIENT
  Age: 47 Year
  Sex: Male

DRUGS (1)
  1. ROSUVASTATIN. [Suspect]
     Active Substance: ROSUVASTATIN
     Indication: HYPERCHOLESTEROLAEMIA
     Dosage: 5 MILLIGRAM, QD
     Route: 065

REACTIONS (4)
  - Autoimmune hepatitis [Recovering/Resolving]
  - Acute hepatic failure [Recovering/Resolving]
  - Hepatitis acute [Recovering/Resolving]
  - Drug-induced liver injury [Recovering/Resolving]
